FAERS Safety Report 18853161 (Version 2)
Quarter: 2021Q1

REPORT INFORMATION
  Report Type: Spontaneous
  Country: GB (occurrence: GB)
  Receive Date: 20210205
  Receipt Date: 20210223
  Transmission Date: 20210420
  Serious: Yes (Other)
  Sender: FDA-Public Use
  Company Number: GB-BAYER-2021-049903

PATIENT
  Age: 30 Year
  Sex: Female
  Weight: 69 kg

DRUGS (1)
  1. MIRENA [Suspect]
     Active Substance: LEVONORGESTREL
     Indication: CONTRACEPTION
     Dosage: 20 ?G PER DAY CONTINUOUSLY
     Route: 067
     Dates: start: 20170117, end: 20210129

REACTIONS (8)
  - Syncope [None]
  - Device difficult to use [None]
  - Procedural pain [Unknown]
  - Medical device pain [Recovered/Resolved]
  - Dysmenorrhoea [Unknown]
  - Embedded device [None]
  - Genital haemorrhage [Unknown]
  - Complication of device removal [None]

NARRATIVE: CASE EVENT DATE: 20170117
